FAERS Safety Report 6157876-X (Version None)
Quarter: 2009Q2

REPORT INFORMATION
  Report Type: 
  Country: None (occurrence: None)
  Receive Date: 20090414
  Receipt Date: 20090408
  Transmission Date: 20091009
  Serious: Yes (Hospitalization)
  Sender: FDA-Public Use
  Company Number: GXKR2009DE04406

PATIENT
  Age: 74 Year
  Sex: Male

DRUGS (1)
  1. DICLAC (NGX) (DICLOFENAC) SOLUTION FOR INJECTION, 75MG [Suspect]
     Indication: INTERVERTEBRAL DISC DISORDER
     Dosage: 75 MG, ONCE/SINGLE, INTRAMUSCULAR
     Route: 030
     Dates: start: 20090310, end: 20090310

REACTIONS (2)
  - ATRIAL FIBRILLATION [None]
  - HYPERSENSITIVITY [None]
